FAERS Safety Report 9486502 (Version 1)
Quarter: 2013Q3

REPORT INFORMATION
  Report Type: Spontaneous
  Country: DE (occurrence: None)
  Receive Date: 20130823
  Receipt Date: 20130823
  Transmission Date: 20140515
  Serious: Yes (Death, Hospitalization)
  Sender: FDA-Public Use
  Company Number: IPC201308-000332

PATIENT
  Age: 78 Year
  Sex: Female

DRUGS (5)
  1. METFORMIN HYDROCHLORIDE [Suspect]
     Indication: TYPE 2 DIABETES MELLITUS
  2. RAMIPRIL [Suspect]
  3. ISOSORBIDE DINITRATE [Suspect]
  4. VERAPAMIL [Suspect]
  5. PANTOPRAZOLE (PANTOPAZOLE) (PANTOPRAZOLE) [Suspect]

REACTIONS (26)
  - Lactic acidosis [None]
  - Dyspnoea [None]
  - Circulatory collapse [None]
  - Haematochezia [None]
  - Toxicity to various agents [None]
  - Overdose [None]
  - Decreased appetite [None]
  - Malaise [None]
  - Abdominal pain upper [None]
  - Diarrhoea [None]
  - Asthenia [None]
  - Urine output decreased [None]
  - General physical health deterioration [None]
  - Malnutrition [None]
  - Somnolence [None]
  - Hyponatraemia [None]
  - Hypercalcaemia [None]
  - Blood creatinine increased [None]
  - Glomerular filtration rate decreased [None]
  - White blood cell count increased [None]
  - C-reactive protein increased [None]
  - Fibrin D dimer increased [None]
  - Depressed level of consciousness [None]
  - Hypoxia [None]
  - Hypocapnia [None]
  - Renal impairment [None]
